FAERS Safety Report 4343649-7 (Version None)
Quarter: 2004Q2

REPORT INFORMATION
  Report Type: 
  Country: None (occurrence: None)
  Receive Date: 20040419
  Receipt Date: 20040401
  Transmission Date: 20050107
  Serious: Yes (Hospitalization)
  Sender: FDA-Public Use
  Company Number: DSA_24190_2004

PATIENT
  Age: 83 Year
  Sex: Female

DRUGS (2)
  1. ENALAPRIL MALEATE [Suspect]
     Indication: HYPERTENSION
     Dates: end: 20040126
  2. FUROSEMIDE [Suspect]
     Indication: HYPERTENSION
     Dates: end: 20040126

REACTIONS (3)
  - CREPITATIONS [None]
  - DYSPNOEA [None]
  - RENAL FAILURE ACUTE [None]
